FAERS Safety Report 9425322 (Version 2)
Quarter: 2013Q3

REPORT INFORMATION
  Report Type: Spontaneous
  Country: DE (occurrence: DE)
  Receive Date: 20130729
  Receipt Date: 20130815
  Transmission Date: 20140515
  Serious: Yes (Other)
  Sender: FDA-Public Use
  Company Number: DE-UCBSA-092526

PATIENT
  Age: 72 Year
  Sex: Female
  Weight: 83 kg

DRUGS (16)
  1. NEUPRO [Suspect]
     Indication: RESTLESS LEGS SYNDROME
     Route: 062
     Dates: start: 20130610, end: 20130616
  2. NEUPRO [Suspect]
     Indication: RESTLESS LEGS SYNDROME
     Route: 062
     Dates: start: 20130617, end: 20130623
  3. NEUPRO [Suspect]
     Indication: RESTLESS LEGS SYNDROME
     Route: 062
     Dates: start: 20130627, end: 20130715
  4. NEUPRO [Suspect]
     Indication: RESTLESS LEGS SYNDROME
     Route: 062
     Dates: start: 20130716, end: 20130722
  5. METFORMIN [Concomitant]
  6. OMACAR [Concomitant]
  7. FALITHROM [Concomitant]
     Dosage: 1/2
  8. ANASTROZOLE [Concomitant]
     Dosage: 1 MG
  9. VITAMIN B COMPLEX [Concomitant]
  10. DEKRISTOL [Concomitant]
     Dosage: 600-800I.U
  11. LEVODOPA [Concomitant]
  12. LEVODOPA RETARD [Concomitant]
  13. CANDECOR [Concomitant]
     Dosage: 8 MG
  14. IBANDRONIC ACID [Concomitant]
     Dosage: 150 MG
  15. TILIDINE [Concomitant]
     Dosage: DROPS OR TABLETS AT NIGHT
  16. KATADOLON LONG [Concomitant]

REACTIONS (2)
  - Blood pressure decreased [Not Recovered/Not Resolved]
  - Atrial fibrillation [Unknown]
